FAERS Safety Report 7772662-2 (Version None)
Quarter: 2011Q3

REPORT INFORMATION
  Report Type: 
  Country: None (occurrence: None)
  Receive Date: 20110922
  Receipt Date: 20110329
  Transmission Date: 20111222
  Serious: No
  Sender: FDA-Public Use
  Company Number: US-ASTRAZENECA-2011SE17880

PATIENT
  Age: 69 Year
  Sex: Female
  Weight: 76.2 kg

DRUGS (3)
  1. SEROQUEL [Suspect]
     Indication: SLEEP DISORDER
     Route: 048
     Dates: end: 20110326
  2. SEROQUEL [Suspect]
     Route: 048
     Dates: start: 20110327
  3. OXYCODONE HCL [Concomitant]

REACTIONS (5)
  - DIZZINESS [None]
  - OEDEMA PERIPHERAL [None]
  - DIARRHOEA [None]
  - SLEEP DISORDER [None]
  - NAUSEA [None]
